FAERS Safety Report 7934679-4 (Version None)
Quarter: 2011Q4

REPORT INFORMATION
  Report Type: 
  Country: None (occurrence: None)
  Receive Date: 20111122
  Receipt Date: 20111111
  Transmission Date: 20120403
  Serious: Yes (Hospitalization, Other)
  Sender: FDA-Public Use
  Company Number: US-MERCK-1108USA01571

PATIENT
  Age: 74 Year
  Sex: Male
  Weight: 85 kg

DRUGS (2)
  1. FOSAMAX [Suspect]
     Route: 048
  2. FOSAMAX [Suspect]
     Indication: OSTEITIS DEFORMANS
     Route: 048
     Dates: start: 19950101, end: 20110216

REACTIONS (39)
  - CORONARY ARTERY BYPASS [None]
  - LEFT VENTRICULAR DYSFUNCTION [None]
  - EPISTAXIS [None]
  - PEPTIC ULCER [None]
  - HYPERLIPIDAEMIA [None]
  - BLOOD PRESSURE INCREASED [None]
  - CARDIAC FAILURE [None]
  - RENAL ATROPHY [None]
  - ORAL TORUS [None]
  - FALL [None]
  - DYSLIPIDAEMIA [None]
  - ARTERIOSCLEROSIS CORONARY ARTERY [None]
  - OSTEOARTHRITIS [None]
  - BENIGN PROSTATIC HYPERPLASIA [None]
  - PAIN IN EXTREMITY [None]
  - OSTEONECROSIS OF JAW [None]
  - BLADDER CANCER [None]
  - STRESS [None]
  - ISCHAEMIC CARDIOMYOPATHY [None]
  - TOOTH FRACTURE [None]
  - GINGIVAL BLEEDING [None]
  - BLADDER DISORDER [None]
  - ATRIAL FIBRILLATION [None]
  - BASAL GANGLIA STROKE [None]
  - CARDIAC FAILURE CONGESTIVE [None]
  - COUGH [None]
  - MYOCARDIAL INFARCTION [None]
  - POOR QUALITY SLEEP [None]
  - POLYNEUROPATHY [None]
  - CARDIAC DISORDER [None]
  - INAPPROPRIATE SCHEDULE OF DRUG ADMINISTRATION [None]
  - TREMOR [None]
  - RENAL CYST [None]
  - NEUROPATHY PERIPHERAL [None]
  - HEAD INJURY [None]
  - LACERATION [None]
  - DENTAL CARIES [None]
  - CONTUSION [None]
  - GASTROOESOPHAGEAL REFLUX DISEASE [None]
